FAERS Safety Report 8300642-7 (Version None)
Quarter: 2012Q2

REPORT INFORMATION
  Report Type: 
  Country: None (occurrence: None)
  Receive Date: 20120420
  Receipt Date: 20120412
  Transmission Date: 20120825
  Serious: Yes (Other)
  Sender: FDA-Public Use
  Company Number: PHEH2012US007937

PATIENT
  Sex: Female
  Weight: 18 kg

DRUGS (1)
  1. EXJADE [Suspect]
     Indication: THALASSAEMIA BETA
     Dosage: 27.77 MG/KG/DAILY
     Route: 048
     Dates: start: 20120318, end: 20120330

REACTIONS (3)
  - NEPHRITIS [None]
  - MICROALBUMINURIA [None]
  - PROTEINURIA [None]
